FAERS Safety Report 10132659 (Version 2)
Quarter: 2015Q1

REPORT INFORMATION
  Report Type: Other
  Country: US (occurrence: US)
  Receive Date: 20140428
  Receipt Date: 20150223
  Transmission Date: 20150720
  Serious: Yes (Hospitalization, Other)
  Sender: FDA-Public Use
  Company Number: US-GSKPPD-2014GSK034068

PATIENT
  Age: 59 Year
  Sex: Male

DRUGS (6)
  1. LOPRESSOR [Concomitant]
     Active Substance: METOPROLOL TARTRATE
  2. AVANDIA [Suspect]
     Active Substance: ROSIGLITAZONE MALEATE
     Indication: DIABETES MELLITUS
     Dosage: AVANDIA WAS NOT LISTED AMONG THE PATIENTS RECORDS REVIEWED.
     Route: 048
  3. ASCRIPTIN [Concomitant]
     Active Substance: ASPIRIN
  4. CORDARONE [Concomitant]
     Active Substance: AMIODARONE HYDROCHLORIDE
  5. LASIX [Concomitant]
     Active Substance: FUROSEMIDE
  6. ALTACE [Concomitant]
     Active Substance: RAMIPRIL

REACTIONS (1)
  - Acute myocardial infarction [Recovered/Resolved]

NARRATIVE: CASE EVENT DATE: 20010525
